FAERS Safety Report 15348122 (Version 1)
Quarter: 2018Q3

REPORT INFORMATION
  Report Type: Spontaneous
  Country: US (occurrence: US)
  Receive Date: 20180904
  Receipt Date: 20180904
  Transmission Date: 20181010
  Serious: No
  Sender: FDA-Public Use
  Company Number: US-MYLANLABS-2018M1063918

PATIENT
  Age: 54 Year
  Sex: Female
  Weight: 54 kg

DRUGS (2)
  1. LIDOCAINE PATCH [Suspect]
     Active Substance: LIDOCAINE
     Indication: BACK PAIN
  2. LIDOCAINE PATCH [Suspect]
     Active Substance: LIDOCAINE
     Indication: NECK PAIN
     Dosage: UNK
     Route: 003
     Dates: start: 20180618, end: 2018

REACTIONS (3)
  - Product adhesion issue [Not Recovered/Not Resolved]
  - Drug ineffective for unapproved indication [Unknown]
  - Product quality issue [Not Recovered/Not Resolved]

NARRATIVE: CASE EVENT DATE: 20180618
